FAERS Safety Report 11372007 (Version 2)
Quarter: 2015Q3

REPORT INFORMATION
  Report Type: Spontaneous
  Country: US (occurrence: US)
  Receive Date: 20150812
  Receipt Date: 20150904
  Transmission Date: 20151125
  Serious: Yes (Death, Other)
  Sender: FDA-Public Use
  Company Number: US-ACTELION-A-US2015-122236

PATIENT
  Age: 70 Year
  Sex: Female

DRUGS (2)
  1. VELETRI [Suspect]
     Active Substance: EPOPROSTENOL
     Indication: PULMONARY ARTERIAL HYPERTENSION
     Dosage: 90.6 NG/KG, PER MIN
     Route: 042
     Dates: start: 20101101
  2. LETAIRIS [Concomitant]
     Active Substance: AMBRISENTAN

REACTIONS (4)
  - Right ventricular failure [Fatal]
  - Terminal state [Fatal]
  - Hypoxia [Fatal]
  - Hypotension [Fatal]

NARRATIVE: CASE EVENT DATE: 201507
